FAERS Safety Report 21221880 (Version 1)
Quarter: 2022Q3

REPORT INFORMATION
  Report Type: Spontaneous
  Country: US (occurrence: None)
  Receive Date: 20220816
  Receipt Date: 20220816
  Transmission Date: 20221027
  Serious: Yes (Death)
  Sender: FDA-Public Use
  Company Number: None

PATIENT
  Age: 56 Year
  Sex: Male

DRUGS (11)
  1. TACROLIMUS [Suspect]
     Active Substance: TACROLIMUS
     Dosage: 1 MG QD ORAL
     Route: 048
  2. MYCOPHENOLIC ACID [Suspect]
     Active Substance: MYCOPHENOLIC ACID
     Dosage: 250 MG QD ORAL
     Route: 048
  3. TYLENOL [Concomitant]
     Active Substance: ACETAMINOPHEN
  4. ASPIRIN LOW [Concomitant]
  5. GLUCOSAMINE [Concomitant]
     Active Substance: GLUCOSAMINE
  6. CLONIDINE [Concomitant]
     Active Substance: CLONIDINE
  7. METOPROLOL SUCCINATE [Concomitant]
     Active Substance: METOPROLOL SUCCINATE
  8. DOXAZOSIN [Concomitant]
     Active Substance: DOXAZOSIN MESYLATE
  9. FAMOTIDINE [Concomitant]
     Active Substance: FAMOTIDINE
  10. VALSARTAN [Concomitant]
     Active Substance: VALSARTAN
  11. CINACALCET [Concomitant]
     Active Substance: CINACALCET

REACTIONS (1)
  - Death [None]

NARRATIVE: CASE EVENT DATE: 20220701
